FAERS Safety Report 7889151-7 (Version None)
Quarter: 2011Q4

REPORT INFORMATION
  Report Type: 
  Country: None (occurrence: None)
  Receive Date: 20111103
  Receipt Date: 20111028
  Transmission Date: 20120403
  Serious: Yes (Death)
  Sender: FDA-Public Use
  Company Number: JP-PFIZER INC-2011256134

PATIENT
  Age: 70 Year
  Sex: Female

DRUGS (5)
  1. VFEND [Suspect]
     Indication: BRONCHOPULMONARY ASPERGILLOSIS
     Dosage: 120 MG/DAY
     Route: 041
     Dates: start: 20111013, end: 20111013
  2. AMBISOME [Concomitant]
     Indication: BRONCHOPULMONARY ASPERGILLOSIS
     Dosage: 50 MG/DAY
     Route: 041
     Dates: start: 20111014, end: 20111015
  3. AMBISOME [Concomitant]
     Dosage: 50 MG/DAY
     Route: 041
     Dates: start: 20111018, end: 20111020
  4. VFEND [Suspect]
     Dosage: 10 MG/DAY
     Route: 041
     Dates: start: 20111014, end: 20111014
  5. VFEND [Suspect]
     Dosage: 10 MG/DAY
     Route: 041
     Dates: start: 20111021, end: 20111021

REACTIONS (1)
  - DYSPNOEA [None]
